FAERS Safety Report 4269262-8 (Version None)
Quarter: 2004Q1

REPORT INFORMATION
  Report Type: 
  Country: None (occurrence: None)
  Receive Date: 20040109
  Receipt Date: 20031229
  Transmission Date: 20041129
  Serious: Yes (Hospitalization)
  Sender: FDA-Public Use
  Company Number: 2003SE05550

PATIENT
  Age: 68 Year
  Sex: Male
  Weight: 59 kg

DRUGS (5)
  1. BLOPRESS [Suspect]
     Indication: ESSENTIAL HYPERTENSION
     Dosage: 8 MG DAILY PO
     Dates: start: 20000317, end: 20030805
  2. ALDACTONE [Suspect]
     Indication: ESSENTIAL HYPERTENSION
     Dosage: 25 MG QD PO
     Dates: start: 20011016
  3. BISOPROLOL FUMARATE [Concomitant]
  4. BENIDIPINE HYDROCHLORIDE [Concomitant]
  5. ALLOPURINOL [Concomitant]

REACTIONS (6)
  - ACUTE MYOCARDIAL INFARCTION [None]
  - ELECTROCARDIOGRAM ST-T SEGMENT ELEVATION [None]
  - HYPERURICAEMIA [None]
  - SINUS BRADYCARDIA [None]
  - SUPRAVENTRICULAR EXTRASYSTOLES [None]
  - WHITE BLOOD CELL COUNT INCREASED [None]
